FAERS Safety Report 6393462-4 (Version None)
Quarter: 2009Q4

REPORT INFORMATION
  Report Type: 
  Country: None (occurrence: None)
  Receive Date: 20091008
  Receipt Date: 20090924
  Transmission Date: 20100525
  Serious: Yes (Life-Threatening)
  Sender: FDA-Public Use
  Company Number: GB-PFIZER INC-2009273372

PATIENT
  Age: 36 Year

DRUGS (3)
  1. CHAMPIX [Suspect]
     Indication: SMOKING CESSATION THERAPY
     Dosage: 0.5 MG, UNK
     Route: 048
     Dates: start: 20090810, end: 20090815
  2. METHADONE [Concomitant]
     Indication: DRUG DEPENDENCE
     Dosage: 110 ML, UNK
     Route: 048
     Dates: start: 20060101
  3. ZOPICLONE [Concomitant]
     Indication: INSOMNIA
     Dosage: 22.5 MG, UNK
     Route: 048

REACTIONS (3)
  - AGITATION [None]
  - IMPULSIVE BEHAVIOUR [None]
  - SUICIDE ATTEMPT [None]
